FAERS Safety Report 12320970 (Version 1)
Quarter: 2016Q2

REPORT INFORMATION
  Report Type: Spontaneous
  Country: US (occurrence: US)
  Receive Date: 20160502
  Receipt Date: 20160502
  Transmission Date: 20160815
  Serious: Yes (Other)
  Sender: FDA-Public Use
  Company Number: US-AMGEN-USASP2016053301

PATIENT
  Age: 58 Year
  Sex: Male

DRUGS (1)
  1. REPATHA [Suspect]
     Active Substance: EVOLOCUMAB
     Indication: HYPERCHOLESTEROLAEMIA
     Dosage: 140 MG, Q2WK
     Route: 065
     Dates: start: 20160115

REACTIONS (8)
  - Injection site haemorrhage [Unknown]
  - Implantable defibrillator insertion [Unknown]
  - Blood pressure decreased [Unknown]
  - Pallor [Unknown]
  - Drug dose omission [Unknown]
  - Cardiac operation [Unknown]
  - Device defective [Unknown]
  - Incorrect product storage [Unknown]

NARRATIVE: CASE EVENT DATE: 20160422
